FAERS Safety Report 6173726-X (Version None)
Quarter: 2009Q2

REPORT INFORMATION
  Report Type: 
  Country: None (occurrence: None)
  Receive Date: 20090430
  Receipt Date: 20090422
  Transmission Date: 20091009
  Serious: Yes (Other)
  Sender: FDA-Public Use
  Company Number: PHHY2009CA15356

PATIENT
  Sex: Female

DRUGS (1)
  1. ACLASTA [Suspect]
     Indication: OSTEOPOROSIS
     Dosage: UNK
     Dates: start: 20090408

REACTIONS (4)
  - GINGIVAL PAIN [None]
  - OEDEMA MOUTH [None]
  - ORAL HERPES [None]
  - TOOTHACHE [None]
